FAERS Safety Report 19416192 (Version 2)
Quarter: 2021Q2

REPORT INFORMATION
  Report Type: Spontaneous
  Country: JP (occurrence: JP)
  Receive Date: 20210614
  Receipt Date: 20210628
  Transmission Date: 20210717
  Serious: Yes (Hospitalization, Other)
  Sender: FDA-Public Use
  Company Number: JP-ELI_LILLY_AND_COMPANY-JP202106001482

PATIENT
  Age: 38 Year
  Sex: Female

DRUGS (1)
  1. BAQSIMI [Suspect]
     Active Substance: GLUCAGON
     Indication: HYPOGLYCAEMIA
     Dosage: 3 MG, SINGLE
     Route: 045
     Dates: start: 20210524

REACTIONS (7)
  - Eye pain [Unknown]
  - Vomiting [Unknown]
  - Hypoglycaemia [Recovered/Resolved]
  - Nausea [Unknown]
  - Rhinalgia [Unknown]
  - Lacrimation increased [Unknown]
  - Headache [Recovered/Resolved]

NARRATIVE: CASE EVENT DATE: 20210524
